FAERS Safety Report 5308977-7 (Version None)
Quarter: 2007Q2

REPORT INFORMATION
  Report Type: 
  Country: None (occurrence: None)
  Receive Date: 20070420
  Receipt Date: 20070406
  Transmission Date: 20071010
  Serious: Yes (Death, Hospitalization)
  Sender: FDA-Public Use
  Company Number: 2007P1000180

PATIENT
  Age: 3 Year
  Sex: Female

DRUGS (3)
  1. BUSULFAN (BUSULFAN) [Suspect]
     Indication: STEM CELL TRANSPLANT
     Dosage: 17 MG; QD; IV
     Route: 042
     Dates: start: 20060913, end: 20060917
  2. THIOTEPA [Suspect]
     Indication: STEM CELL TRANSPLANT
     Dosage: 180 MG; QD
     Dates: start: 20060918, end: 20060920
  3. THIOTEPA [Concomitant]

REACTIONS (11)
  - ACUTE RESPIRATORY DISTRESS SYNDROME [None]
  - BLOOD PH DECREASED [None]
  - CATHETER RELATED INFECTION [None]
  - ESCHERICHIA INFECTION [None]
  - PCO2 INCREASED [None]
  - PLEURAL EFFUSION [None]
  - PNEUMOTHORAX [None]
  - PO2 DECREASED [None]
  - PROTEUS INFECTION [None]
  - PYREXIA [None]
  - STENOTROPHOMONAS INFECTION [None]
